FAERS Safety Report 8249985-6 (Version None)
Quarter: 2012Q2

REPORT INFORMATION
  Report Type: 
  Country: None (occurrence: None)
  Receive Date: 20120402
  Receipt Date: 20120328
  Transmission Date: 20120825
  Serious: Yes (Hospitalization, Other)
  Sender: FDA-Public Use
  Company Number: US-JNJFOC-20120102327

PATIENT
  Sex: Male
  Weight: 83.92 kg

DRUGS (9)
  1. ULTRAM [Suspect]
     Indication: PAIN
     Route: 048
     Dates: start: 20111207
  2. ULTRAM [Suspect]
     Indication: KNEE ARTHROPLASTY
     Route: 048
     Dates: start: 20111207
  3. OXYCONTIN [Concomitant]
     Route: 048
     Dates: start: 20111207
  4. CELEBREX [Concomitant]
     Route: 048
     Dates: start: 20111207
  5. NSAID'S [Concomitant]
  6. ESOMEPRAZOLE [Concomitant]
     Route: 048
     Dates: start: 20110302
  7. PERCOCET [Concomitant]
     Route: 048
     Dates: start: 20111207
  8. XARELTO [Suspect]
     Indication: KNEE ARTHROPLASTY
     Route: 048
     Dates: start: 20111208, end: 20111209
  9. XARELTO [Suspect]
     Indication: THROMBOSIS PROPHYLAXIS
     Route: 048
     Dates: start: 20111208, end: 20111209

REACTIONS (4)
  - NAUSEA [None]
  - MALLORY-WEISS SYNDROME [None]
  - VOMITING [None]
  - OESOPHAGEAL HAEMORRHAGE [None]
